FAERS Safety Report 4402743-2 (Version None)
Quarter: 2004Q3

REPORT INFORMATION
  Report Type: 
  Country: None (occurrence: None)
  Receive Date: 20040721
  Receipt Date: 20040224
  Transmission Date: 20050211
  Serious: No
  Sender: FDA-Public Use
  Company Number: US-BRISTOL-MYERS SQUIBB COMPANY-12515490

PATIENT
  Age: 59 Year
  Sex: Female
  Weight: 66 kg

DRUGS (8)
  1. ESTRACE [Suspect]
  2. OXYTROL [Suspect]
     Indication: INCONTINENCE
     Route: 062
     Dates: start: 20031208, end: 20031211
  3. ALTACE [Suspect]
  4. PAXIL [Suspect]
  5. PROVERA [Suspect]
  6. LIPITOR [Suspect]
  7. VITAMIN E [Concomitant]
  8. CALCIUM + VITAMIN D [Concomitant]

REACTIONS (1)
  - DRY MOUTH [None]
